FAERS Safety Report 5906679-7 (Version None)
Quarter: 2008Q3

REPORT INFORMATION
  Report Type: 
  Country: None (occurrence: None)
  Receive Date: 20080930
  Receipt Date: 20080919
  Transmission Date: 20090109
  Serious: Yes (Death)
  Sender: FDA-Public Use
  Company Number: GXKR2008TH09024

PATIENT
  Age: 48 Year
  Sex: Male

DRUGS (5)
  1. CYCLOSPORINE [Suspect]
     Indication: RENAL TRANSPLANT
  2. PREDNISOLONE [Suspect]
     Indication: RENAL TRANSPLANT
  3. METHYLPREDNISOLONE [Suspect]
     Indication: KIDNEY TRANSPLANT REJECTION
  4. OKT 3 (MUROMONAB-CD3) [Suspect]
     Indication: KIDNEY TRANSPLANT REJECTION
  5. THYMOGLOBULIN [Suspect]
     Indication: KIDNEY TRANSPLANT REJECTION

REACTIONS (12)
  - AGITATION [None]
  - BRADYCARDIA [None]
  - BRAIN ABSCESS [None]
  - BRAIN OEDEMA [None]
  - COGNITIVE DISORDER [None]
  - COMA [None]
  - CONFUSIONAL STATE [None]
  - DYSARTHRIA [None]
  - HEMIPARESIS [None]
  - HYPOTENSION [None]
  - PSEUDALLESCHERIA INFECTION [None]
  - TRANSPLANT REJECTION [None]
